FAERS Safety Report 8562341-6 (Version None)
Quarter: 2012Q3

REPORT INFORMATION
  Report Type: 
  Country: None (occurrence: None)
  Receive Date: 20120802
  Receipt Date: 20120713
  Transmission Date: 20120928
  Serious: No
  Sender: FDA-Public Use
  Company Number: US-AMGEN-USASP2012043722

PATIENT
  Age: 51 Year
  Sex: Female

DRUGS (2)
  1. METHOTREXATE [Concomitant]
     Dosage: UNK
  2. ENBREL [Suspect]
     Indication: RHEUMATOID ARTHRITIS
     Dosage: 25 MG, QWK
     Dates: start: 20041123

REACTIONS (10)
  - WOUND SECRETION [None]
  - SINUSITIS [None]
  - HERPES ZOSTER [None]
  - INJECTION SITE ERYTHEMA [None]
  - PAIN IN EXTREMITY [None]
  - INJECTION SITE REACTION [None]
  - INJECTION SITE WARMTH [None]
  - INJECTION SITE SWELLING [None]
  - EYE INFECTION [None]
  - URTICARIA [None]
